FAERS Safety Report 4443474-2 (Version None)
Quarter: 2004Q3

REPORT INFORMATION
  Report Type: 
  Country: None (occurrence: None)
  Receive Date: 20040901
  Receipt Date: 20040823
  Transmission Date: 20050211
  Serious: Yes (Death)
  Sender: FDA-Public Use
  Company Number: 2004UW15638

PATIENT
  Age: 16 Year
  Sex: Male

DRUGS (3)
  1. SEROQUEL [Suspect]
  2. XANAX [Suspect]
     Dosage: 0.5 MG TID
  3. HYDROCODONE [Suspect]
     Dosage: 7.5/500 Q8H

REACTIONS (4)
  - ACCIDENT [None]
  - BRAIN OEDEMA [None]
  - PULMONARY OEDEMA [None]
  - SPLEEN CONGESTION [None]
